FAERS Safety Report 6574366-0 (Version None)
Quarter: 2010Q1

REPORT INFORMATION
  Report Type: 
  Country: None (occurrence: None)
  Receive Date: 20100208
  Receipt Date: 20100204
  Transmission Date: 20100710
  Serious: Yes (Disabling)
  Sender: FDA-Public Use
  Company Number: GB-MERCK-0911GBR00058

PATIENT
  Age: 45 Year
  Sex: Male
  Weight: 78 kg

DRUGS (3)
  1. ISENTRESS [Suspect]
     Indication: HIV INFECTION
     Route: 048
  2. DARUNAVIR AND RITONAVIR [Suspect]
     Route: 065
     Dates: start: 20080729
  3. ETRAVIRINE [Concomitant]
     Route: 065

REACTIONS (2)
  - OEDEMA [None]
  - WEIGHT INCREASED [None]
